FAERS Safety Report 7254397-8 (Version None)
Quarter: 2011Q1

REPORT INFORMATION
  Report Type: 
  Country: None (occurrence: None)
  Receive Date: 20110129
  Receipt Date: 20100424
  Transmission Date: 20110831
  Serious: No
  Sender: FDA-Public Use
  Company Number: US-ABBOTT-10P-163-0640521-00

PATIENT
  Sex: Female
  Weight: 77.18 kg

DRUGS (3)
  1. LEFLUNOMIDE [Concomitant]
     Indication: PRODUCT USED FOR UNKNOWN INDICATION
  2. HUMIRA [Suspect]
     Indication: RHEUMATOID ARTHRITIS
     Dates: start: 20100409
  3. PREDNISONE [Concomitant]
     Indication: PRODUCT USED FOR UNKNOWN INDICATION

REACTIONS (5)
  - ERYTHEMA [None]
  - INJECTION SITE ERYTHEMA [None]
  - OROPHARYNGEAL PAIN [None]
  - RASH MACULAR [None]
  - PRURITUS [None]
